FAERS Safety Report 8898426 (Version 1)
Quarter: 2012Q4

REPORT INFORMATION
  Report Type: 
  Country: US (occurrence: US)
  Receive Date: 20121109
  Receipt Date: 20121109
  Transmission Date: 20130627
  Serious: Yes (Other)
  Sender: FDA-Public Use
  Company Number: US-AMGEN-USASP2012070702

PATIENT
  Age: 55 Year
  Sex: Female

DRUGS (1)
  1. ENBREL [Suspect]
     Indication: RHEUMATOID ARTHRITIS
     Dosage: 50 mg, qwk
     Dates: start: 20110526

REACTIONS (13)
  - Self-injurious ideation [Not Recovered/Not Resolved]
  - Depression [Not Recovered/Not Resolved]
  - Neck pain [Not Recovered/Not Resolved]
  - Spinal pain [Not Recovered/Not Resolved]
  - Spinal cord injury [Not Recovered/Not Resolved]
  - Fall [Not Recovered/Not Resolved]
  - Back pain [Not Recovered/Not Resolved]
  - Pain in extremity [Not Recovered/Not Resolved]
  - Pain [Not Recovered/Not Resolved]
  - Panic attack [Not Recovered/Not Resolved]
  - Dyspnoea [Not Recovered/Not Resolved]
  - Stress [Not Recovered/Not Resolved]
  - Social avoidant behaviour [Not Recovered/Not Resolved]
